FAERS Safety Report 14600642 (Version 2)
Quarter: 2018Q1

REPORT INFORMATION
  Report Type: Spontaneous
  Country: US (occurrence: US)
  Receive Date: 20180305
  Receipt Date: 20180305
  Transmission Date: 20180509
  Serious: Yes (Death, Hospitalization)
  Sender: FDA-Public Use
  Company Number: US-CELGENEUS-USA-20180300790

PATIENT
  Age: 66 Year
  Sex: Male

DRUGS (1)
  1. REVLIMID [Suspect]
     Active Substance: LENALIDOMIDE
     Indication: CHRONIC LYMPHOCYTIC LEUKAEMIA
     Dosage: 10 MILLIGRAM
     Route: 048
     Dates: start: 20180125, end: 20180130

REACTIONS (4)
  - Death [Fatal]
  - Pulmonary sepsis [Recovered/Resolved]
  - Acute kidney injury [Unknown]
  - Sepsis [Unknown]

NARRATIVE: CASE EVENT DATE: 201801
